FAERS Safety Report 7775545-7 (Version None)
Quarter: 2011Q3

REPORT INFORMATION
  Report Type: 
  Country: None (occurrence: None)
  Receive Date: 20110923
  Receipt Date: 20110915
  Transmission Date: 20111222
  Serious: Yes (Other)
  Sender: FDA-Public Use
  Company Number: CA-JNJFOC-20110907457

PATIENT
  Sex: Male
  Weight: 85.9 kg

DRUGS (6)
  1. REMICADE [Suspect]
     Indication: RHEUMATOID ARTHRITIS
     Route: 042
     Dates: start: 20090101
  2. MOS [Concomitant]
  3. CALCIUM CARBONATE [Concomitant]
  4. TINZAPARIN [Concomitant]
  5. RABEPRAZOLE SODIUM [Concomitant]
  6. VITAMIN D [Concomitant]

REACTIONS (3)
  - ASTHENIA [None]
  - PAIN [None]
  - LOSS OF CONSCIOUSNESS [None]
